FAERS Safety Report 20617986 (Version 1)
Quarter: 2022Q1

REPORT INFORMATION
  Report Type: Report from Study
  Country: DE (occurrence: DE)
  Receive Date: 20220321
  Receipt Date: 20220321
  Transmission Date: 20220423
  Serious: Yes (Other)
  Sender: FDA-Public Use
  Company Number: DE-BAUSCH-BL-2022-007010

PATIENT
  Age: 50 Year
  Sex: Female

DRUGS (1)
  1. PREDNISOLONE [Suspect]
     Active Substance: PREDNISOLONE
     Indication: Pemphigus
     Route: 065

REACTIONS (3)
  - Epstein-Barr virus infection reactivation [Unknown]
  - Epstein-Barr virus infection [Unknown]
  - Therapy non-responder [Unknown]
